FAERS Safety Report 9058743 (Version 1)
Quarter: 2013Q1

REPORT INFORMATION
  Report Type: Report from Study
  Country: AR (occurrence: AR)
  Receive Date: 20130204
  Receipt Date: 20130204
  Transmission Date: 20140127
  Serious: Yes (Other)
  Sender: FDA-Public Use
  Company Number: PHHO2013AR001253

PATIENT
  Age: 66 Year
  Sex: Male
  Weight: 99.8 kg

DRUGS (10)
  1. ACZ885 [Suspect]
     Indication: CARDIOVASCULAR EVENT PROPHYLAXIS
     Dosage: UNK
     Route: 048
     Dates: start: 20121119, end: 20121209
  2. ENALAPRIL [Suspect]
     Indication: HYPERTENSION
     Dosage: 10 MG, BID
     Route: 048
     Dates: end: 20130117
  3. ASPIRIN [Concomitant]
     Indication: CORONARY ARTERY DISEASE
     Dosage: 100 MG, QD
     Route: 048
  4. ISOSORBIDE MONONITE [Concomitant]
     Indication: CORONARY ARTERY DISEASE
     Dosage: 20 MG, BID
     Route: 048
  5. CARVEDILOL [Concomitant]
     Indication: ACUTE MYOCARDIAL INFARCTION
     Dosage: 25 MG, BID
     Route: 048
     Dates: start: 201203
  6. HYDROCHLOROTHIAZIDE [Concomitant]
     Indication: HYPERTENSION
     Dosage: 12.5 MG, QD
     Route: 048
  7. AMLODIPIN ^ORIFARM^ [Concomitant]
     Indication: HYPERTENSION
     Dosage: 5 MG, QD
     Route: 048
  8. METFORMIN [Concomitant]
     Indication: DIABETES MELLITUS
     Dosage: 850 MG, TID
     Route: 048
     Dates: start: 201202
  9. NPH INSULIN [Concomitant]
     Indication: DIABETES MELLITUS
     Dosage: 12 U, BID
     Route: 058
  10. VERAMON [Concomitant]
     Dosage: UNK

REACTIONS (1)
  - Angioedema [Recovering/Resolving]
